FAERS Safety Report 13064375 (Version 1)
Quarter: 2016Q4

REPORT INFORMATION
  Report Type: Spontaneous
  Country: US (occurrence: US)
  Receive Date: 20161227
  Receipt Date: 20161227
  Transmission Date: 20170207
  Serious: Yes (Life-Threatening)
  Sender: FDA-Public Use
  Company Number: US-ROCHE-1871962

PATIENT
  Age: 55 Year
  Sex: Male

DRUGS (2)
  1. TRETINOIN. [Suspect]
     Active Substance: TRETINOIN
     Indication: ACUTE PROMYELOCYTIC LEUKAEMIA
     Route: 065
  2. OSELTAMIVIR [Suspect]
     Active Substance: OSELTAMIVIR
     Indication: H1N1 INFLUENZA
     Route: 065

REACTIONS (4)
  - Acute promyelocytic leukaemia differentiation syndrome [Recovering/Resolving]
  - H1N1 influenza [Unknown]
  - Interstitial lung disease [Unknown]
  - Organising pneumonia [Unknown]
